FAERS Safety Report 14080685 (Version 1)
Quarter: 2017Q4

REPORT INFORMATION
  Report Type: Spontaneous
  Country: US (occurrence: US)
  Receive Date: 20171012
  Receipt Date: 20171012
  Transmission Date: 20180321
  Serious: No
  Sender: FDA-Public Use
  Company Number: US-MYLANLABS-2017M1039306

PATIENT
  Sex: Female

DRUGS (2)
  1. CYSTAGON [Suspect]
     Active Substance: CYSTEAMINE BITARTRATE
     Indication: AMINO ACID METABOLISM DISORDER
     Dosage: 450 MG, BID
     Route: 048
     Dates: start: 20170214
  2. CYSTAGON [Suspect]
     Active Substance: CYSTEAMINE BITARTRATE
     Dosage: UNK

REACTIONS (2)
  - Vomiting [Unknown]
  - Nausea [Unknown]
